FAERS Safety Report 7536393-6 (Version None)
Quarter: 2011Q2

REPORT INFORMATION
  Report Type: 
  Country: None (occurrence: None)
  Receive Date: 20110608
  Receipt Date: 20110608
  Transmission Date: 20111010
  Serious: Yes (Hospitalization)
  Sender: FDA-Public Use
  Company Number: None

PATIENT
  Age: 73 Year
  Sex: Male

DRUGS (1)
  1. AZATHIOPRINE [Suspect]
     Dosage: ONE TABLET BY MOUTH DAILY
     Route: 048
     Dates: start: 20101201, end: 20110601

REACTIONS (3)
  - PYREXIA [None]
  - HEART RATE DECREASED [None]
  - BLOOD PRESSURE DIASTOLIC DECREASED [None]
